FAERS Safety Report 5462681-3 (Version None)
Quarter: 2007Q3

REPORT INFORMATION
  Report Type: 
  Country: None (occurrence: None)
  Receive Date: 20070920
  Receipt Date: 20070911
  Transmission Date: 20080115
  Serious: Yes (Hospitalization)
  Sender: FDA-Public Use
  Company Number: FR-NOVOPROD-267099

PATIENT
  Age: 78 Year
  Sex: Male

DRUGS (9)
  1. NOVONORM [Suspect]
     Indication: INSULIN-REQUIRING TYPE II DIABETES MELLITUS
     Dosage: 2 MG, QD
     Route: 048
     Dates: start: 20070403
  2. POTASSIUM CHLORIDE [Concomitant]
  3. KARDEGIC                           /00002703/ [Concomitant]
  4. LASILIX                            /00032601/ [Concomitant]
  5. ZYLORIC                            /00003301/ [Concomitant]
  6. INEXIUM                            /01479302/ [Concomitant]
  7. PLAVIX [Concomitant]
  8. VASTEN                             /00880402/ [Concomitant]
  9. CARDENSIEL [Concomitant]

REACTIONS (2)
  - FALL [None]
  - HYPOGLYCAEMIA [None]
